FAERS Safety Report 8422002-0 (Version None)
Quarter: 2012Q2

REPORT INFORMATION
  Report Type: 
  Country: None (occurrence: None)
  Receive Date: 20120608
  Receipt Date: 20120531
  Transmission Date: 20120825
  Serious: Yes (Hospitalization)
  Sender: FDA-Public Use
  Company Number: SE-B.I. PHARMACEUTICALS,INC./RIDGEFIELD-2012-SW-00446SW

PATIENT
  Sex: Female

DRUGS (2)
  1. SPIRIVA [Suspect]
     Route: 055
  2. DAXAS [Suspect]
     Dosage: 500 MCG
     Route: 048
     Dates: start: 20110526

REACTIONS (2)
  - URINARY RETENTION [None]
  - DYSPNOEA [None]
